FAERS Safety Report 7970001-5 (Version None)
Quarter: 2011Q4

REPORT INFORMATION
  Report Type: 
  Country: None (occurrence: None)
  Receive Date: 20111212
  Receipt Date: 20111202
  Transmission Date: 20120403
  Serious: Yes (Other)
  Sender: FDA-Public Use
  Company Number: BR-US-EMD SERONO, INC.-7099988

PATIENT
  Sex: Female

DRUGS (4)
  1. HOMEOPATHIC FORMULA [Concomitant]
  2. REBIF [Suspect]
     Indication: RELAPSING-REMITTING MULTIPLE SCLEROSIS
     Route: 058
     Dates: start: 20100301
  3. WHITE TEA [Concomitant]
  4. REMITEC [Concomitant]

REACTIONS (1)
  - PYELONEPHRITIS [None]
